FAERS Safety Report 9437624 (Version 1)
Quarter: 2013Q3

REPORT INFORMATION
  Report Type: Spontaneous
  Country: US (occurrence: None)
  Receive Date: 20130731
  Receipt Date: 20130731
  Transmission Date: 20140515
  Serious: Yes (Other)
  Sender: FDA-Public Use
  Company Number: 2013AP005999

PATIENT
  Age: 81 Year
  Sex: Female

DRUGS (4)
  1. GABAPENTIN [Suspect]
     Indication: NEUROPATHY PERIPHERAL
     Route: 048
  2. NIFEDIPINE [Concomitant]
  3. CARDURA [Concomitant]
  4. DIURETICS [Concomitant]

REACTIONS (4)
  - Dyspepsia [None]
  - Large intestinal haemorrhage [None]
  - Gastrointestinal inflammation [None]
  - Hypertension [None]
